FAERS Safety Report 22589331 (Version 5)
Quarter: 2023Q4

REPORT INFORMATION
  Report Type: Spontaneous
  Country: US (occurrence: US)
  Receive Date: 20230612
  Receipt Date: 20231128
  Transmission Date: 20240110
  Serious: Yes (Other)
  Sender: FDA-Public Use
  Company Number: US-PFIZER INC-PV202300079037

PATIENT
  Age: 54 Year
  Sex: Female

DRUGS (3)
  1. XELJANZ XR [Suspect]
     Active Substance: TOFACITINIB CITRATE
     Indication: Rheumatoid arthritis
     Dosage: 11 MG, 2X/DAY
     Route: 048
  2. XELJANZ XR [Suspect]
     Active Substance: TOFACITINIB CITRATE
     Dosage: 11 MG, DAILY
     Route: 048
     Dates: start: 202304, end: 202309
  3. XELJANZ XR [Suspect]
     Active Substance: TOFACITINIB CITRATE
     Dosage: 11 MG, DAILY
     Route: 048

REACTIONS (17)
  - Neck surgery [Unknown]
  - Carpal tunnel syndrome [Unknown]
  - Carpal tunnel decompression [Unknown]
  - Peripheral nerve decompression [Unknown]
  - Limb operation [Unknown]
  - Product dose omission in error [Unknown]
  - Off label use [Unknown]
  - Hypoaesthesia [Not Recovered/Not Resolved]
  - Neuralgia [Not Recovered/Not Resolved]
  - Suspected COVID-19 [Unknown]
  - Condition aggravated [Recovering/Resolving]
  - Pain [Recovering/Resolving]
  - Musculoskeletal stiffness [Recovering/Resolving]
  - Joint swelling [Recovering/Resolving]
  - Arthralgia [Recovering/Resolving]
  - Pain in extremity [Unknown]
  - Musculoskeletal stiffness [Unknown]

NARRATIVE: CASE EVENT DATE: 20230101
